FAERS Safety Report 6963981-8 (Version None)
Quarter: 2010Q3

REPORT INFORMATION
  Report Type: 
  Country: None (occurrence: None)
  Receive Date: 20100902
  Receipt Date: 20100818
  Transmission Date: 20110219
  Serious: Yes (Hospitalization)
  Sender: FDA-Public Use
  Company Number: JP-ALLERGAN-1011153US

PATIENT
  Age: 74 Year
  Sex: Male

DRUGS (4)
  1. EPINASTINE HCL UNK [Suspect]
     Indication: CUTANEOUS AMYLOIDOSIS
     Dosage: UNK
     Route: 048
     Dates: start: 20080101, end: 20090901
  2. ACETAMINOPHEN [Suspect]
     Indication: PYREXIA
     Dosage: UNK
     Route: 048
     Dates: start: 20090822, end: 20090822
  3. BENIDIPINE HYDROCHLORIDE [Suspect]
     Indication: HYPERTENSION
     Dosage: UNK
     Route: 048
     Dates: start: 20080101, end: 20090901
  4. IRON [Suspect]
     Indication: IRON DEFICIENCY ANAEMIA
     Dosage: UNK
     Route: 048
     Dates: start: 20080101, end: 20090901

REACTIONS (1)
  - LIVER DISORDER [None]
